FAERS Safety Report 5391603-9 (Version None)
Quarter: 2007Q3

REPORT INFORMATION
  Report Type: 
  Country: None (occurrence: None)
  Receive Date: 20070719
  Receipt Date: 20070710
  Transmission Date: 20080115
  Serious: Yes (Disabling, Other)
  Sender: FDA-Public Use
  Company Number: GB-PFIZER INC-2007057465

PATIENT
  Age: 50 Year
  Sex: Male

DRUGS (6)
  1. ATORVASTATIN CALCIUM [Suspect]
     Route: 048
     Dates: start: 20050914, end: 20070530
  2. SIMVASTATIN [Suspect]
     Route: 048
     Dates: start: 20070530, end: 20070628
  3. AMLODIPINE [Concomitant]
     Route: 048
  4. BENDROFLUMETHIAZIDE [Concomitant]
     Route: 048
  5. MOXONIDINE [Concomitant]
     Route: 048
  6. PERINDOPRIL [Concomitant]
     Route: 048

REACTIONS (1)
  - TENDONITIS [None]
